FAERS Safety Report 23718895 (Version 1)
Quarter: 2024Q2

REPORT INFORMATION
  Report Type: Spontaneous
  Country: BR (occurrence: BR)
  Receive Date: 20240408
  Receipt Date: 20240408
  Transmission Date: 20240716
  Serious: Yes (Other)
  Sender: FDA-Public Use
  Company Number: BR-BAYER-2024A050117

PATIENT
  Sex: Female

DRUGS (1)
  1. KYLEENA [Suspect]
     Active Substance: LEVONORGESTREL
     Dosage: 17.5?G/DAY
     Route: 015
     Dates: start: 20220208, end: 20240208

REACTIONS (6)
  - Abortion incomplete [None]
  - Pregnancy with contraceptive device [None]
  - Foetal growth restriction [None]
  - Nausea [None]
  - Drug ineffective [None]
  - Breast induration [None]

NARRATIVE: CASE EVENT DATE: 20230101
